FAERS Safety Report 13692511 (Version 2)
Quarter: 2018Q1

REPORT INFORMATION
  Report Type: Spontaneous
  Country: IT (occurrence: IT)
  Receive Date: 20170627
  Receipt Date: 20180215
  Transmission Date: 20180508
  Serious: Yes (Other)
  Sender: FDA-Public Use
  Company Number: IT-CIPLA LTD.-2017IT10590

PATIENT

DRUGS (4)
  1. M-M-RVAXPRO [Suspect]
     Active Substance: MEASLES VIRUS STRAIN ENDERS^ ATTENUATED EDMONSTON LIVE ANTIGEN\MUMPS VIRUS STRAIN B LEVEL JERYL LYNN LIVE ANTIGEN\RUBELLA VIRUS STRAIN WISTAR RA 27/3 LIVE ANTIGEN
     Indication: MEASLES IMMUNISATION
     Dosage: 0.5 ML, TOTAL
     Route: 030
     Dates: start: 20170315, end: 20170315
  2. VARILRIX [Suspect]
     Active Substance: VARICELLA-ZOSTER VIRUS STRAIN OKA/MERCK LIVE ANTIGEN
     Indication: VARICELLA IMMUNISATION
     Dosage: 0.5 ML, TOTAL
     Route: 030
     Dates: start: 20170315, end: 20170315
  3. LEVOFLOXACIN. [Suspect]
     Active Substance: LEVOFLOXACIN
     Indication: PNEUMONIA
     Dosage: 500 MG, DAILY
     Route: 048
     Dates: start: 20170319, end: 20170402
  4. TACHIPIRINA [Suspect]
     Active Substance: ACETAMINOPHEN
     Indication: PYREXIA
     Dosage: 3 G, DAILY
     Route: 048
     Dates: start: 20170319, end: 20170326

REACTIONS (4)
  - Hepatocellular injury [Recovered/Resolved]
  - Hyperthermia [Recovered/Resolved]
  - Pain in extremity [Recovered/Resolved]
  - Pneumonia [Recovered/Resolved]

NARRATIVE: CASE EVENT DATE: 20170319
